FAERS Safety Report 8405775-2 (Version None)
Quarter: 2012Q2

REPORT INFORMATION
  Report Type: 
  Country: None (occurrence: None)
  Receive Date: 20120529
  Receipt Date: 20060925
  Transmission Date: 20120825
  Serious: Yes (Hospitalization)
  Sender: FDA-Public Use
  Company Number: 02100-JPN-06-0257

PATIENT
  Age: 75 Year
  Sex: Male

DRUGS (7)
  1. PLETAL [Suspect]
     Indication: CEREBRAL INFARCTION
     Dosage: 50 MG, BID, ORAL 50 MG, QD, ORAL
     Route: 048
     Dates: start: 20060403
  2. PLETAL [Suspect]
     Indication: CEREBRAL INFARCTION
     Dosage: 50 MG, BID, ORAL 50 MG, QD, ORAL
     Route: 048
     Dates: start: 20060130, end: 20060402
  3. LASIX [Concomitant]
  4. PIMENOL (PIRMENOL HYDRCHLORIDE) [Concomitant]
  5. AMLODIPINE BESYLATE [Concomitant]
  6. LANIRAPIL (METILDIGOXIN) [Concomitant]
  7. MARZULENE S (LEVOGLUTAMIDE, SODIUM GUALENATE) [Concomitant]

REACTIONS (3)
  - HAEMORRHAGE SUBCUTANEOUS [None]
  - THROMBOCYTOPENIA [None]
  - ANAEMIA [None]
